FAERS Safety Report 5877324-4 (Version None)
Quarter: 2008Q3

REPORT INFORMATION
  Report Type: 
  Country: None (occurrence: None)
  Receive Date: 20080908
  Receipt Date: 20080825
  Transmission Date: 20090109
  Serious: Yes (Hospitalization)
  Sender: FDA-Public Use
  Company Number: 20117

PATIENT
  Age: 22 Year
  Sex: Male

DRUGS (6)
  1. CISPLATIN [Suspect]
     Indication: GERM CELL CANCER
     Dosage: 60 MG/M2
     Dates: start: 20070216, end: 20070423
  2. ETOPOSIDE [Suspect]
     Indication: GERM CELL CANCER
     Dosage: 300 MG/M2 IV
     Route: 042
     Dates: start: 20070216, end: 20070423
  3. BLEOMYCIN SULFATE [Suspect]
     Indication: GERM CELL CANCER
     Dosage: 90 MG/M2 IV
     Route: 042
     Dates: start: 20070206, end: 20070406
  4. ENOXAPARIN SODIUM [Concomitant]
  5. MORPHINE [Concomitant]
  6. METOCLOPRAMIDE [Concomitant]

REACTIONS (2)
  - FEBRILE NEUTROPENIA [None]
  - PULMONARY EMBOLISM [None]
